FAERS Safety Report 7366963-X (Version None)
Quarter: 2011Q1

REPORT INFORMATION
  Report Type: 
  Country: None (occurrence: None)
  Receive Date: 20110322
  Receipt Date: 20110311
  Transmission Date: 20110831
  Serious: Yes (Other)
  Sender: FDA-Public Use
  Company Number: US-PFIZER INC-2006069870

PATIENT
  Sex: Female

DRUGS (2)
  1. NEURONTIN [Suspect]
     Dosage: 300 MG, UNK
     Dates: start: 19941104
  2. NEURONTIN [Suspect]
     Dosage: 600 MG MORNING AND EVERY NIGHT AT BED TIME AND 300MG EVERY DAY AFTERNOON
     Dates: start: 20040809, end: 20040814

REACTIONS (3)
  - DEPRESSION [None]
  - SUICIDE ATTEMPT [None]
  - SUICIDAL IDEATION [None]
